FAERS Safety Report 24416410 (Version 3)
Quarter: 2024Q4

REPORT INFORMATION
  Report Type: Spontaneous
  Country: US (occurrence: US)
  Receive Date: 20241009
  Receipt Date: 20241118
  Transmission Date: 20250114
  Serious: No
  Sender: ALEXION PHARMACEUTICALS
  Company Number: US-AstraZeneca-CH-00711539AP

PATIENT

DRUGS (1)
  1. FASENRA [Suspect]
     Active Substance: BENRALIZUMAB
     Dosage: 30 MILLIGRAM PER MILLILITRE

REACTIONS (4)
  - Product dose omission issue [Unknown]
  - Injection site haemorrhage [Unknown]
  - Incorrect dose administered by product [Unknown]
  - Toothache [Unknown]
